FAERS Safety Report 5096645-9 (Version None)
Quarter: 2006Q3

REPORT INFORMATION
  Report Type: 
  Country: None (occurrence: None)
  Receive Date: 20060831
  Receipt Date: 20060825
  Transmission Date: 20061208
  Serious: Yes (Hospitalization)
  Sender: FDA-Public Use
  Company Number: ITWYE782925AUG06

PATIENT
  Age: 74 Year
  Sex: Female

DRUGS (2)
  1. EFFEXOR [Suspect]
     Indication: DEPRESSION
     Dosage: 75 MG 1X PER 1 DAY ORAL
     Route: 048
     Dates: start: 20060101, end: 20060720
  2. XANAX [Suspect]
     Indication: ANXIETY DISORDER DUE TO A GENERAL MEDICAL CONDITION
     Dosage: 20 DROP 1X PER 1 DAY ORAL
     Route: 048
     Dates: start: 20060101, end: 20060725

REACTIONS (5)
  - AGRANULOCYTOSIS [None]
  - HERPES ZOSTER [None]
  - LYMPHOCYTE PERCENTAGE INCREASED [None]
  - MONOCYTE PERCENTAGE INCREASED [None]
  - UNEVALUABLE EVENT [None]
